FAERS Safety Report 10723163 (Version 1)
Quarter: 2015Q1

REPORT INFORMATION
  Report Type: Spontaneous
  Country: US (occurrence: US)
  Receive Date: 20150120
  Receipt Date: 20150120
  Transmission Date: 20150721
  Serious: No
  Sender: FDA-Public Use
  Company Number: US-PFIZER INC-2015021284

PATIENT
  Age: 8 Year
  Sex: Male
  Weight: 36 kg

DRUGS (3)
  1. CROMOLYN /00082101/ [Concomitant]
     Indication: MULTIPLE ALLERGIES
     Dosage: UNK, IN THE SPRING AND SUMMER
     Route: 047
  2. QUILLIVANT XR [Suspect]
     Active Substance: METHYLPHENIDATE HYDROCHLORIDE
     Indication: ATTENTION DEFICIT/HYPERACTIVITY DISORDER
     Dosage: 5 ML, DAILY
     Route: 048
  3. FLUTICASONE [Concomitant]
     Active Substance: FLUTICASONE\FLUTICASONE PROPIONATE
     Indication: MULTIPLE ALLERGIES
     Dosage: UNK, 2X/DAY, ONLY IN THE SUMMER
     Route: 045

REACTIONS (2)
  - Renal disorder [Unknown]
  - Weight increased [Not Recovered/Not Resolved]
